FAERS Safety Report 9738461 (Version 2)
Quarter: 2014Q2

REPORT INFORMATION
  Report Type: Report from Study
  Country: AR (occurrence: AR)
  Receive Date: 20131208
  Receipt Date: 20140419
  Transmission Date: 20141212
  Serious: Yes (Hospitalization)
  Sender: FDA-Public Use
  Company Number: AR-US-EMD SERONO, INC.-7255268

PATIENT
  Age: 62 Year
  Sex: Male

DRUGS (3)
  1. REBIF [Suspect]
     Indication: MULTIPLE SCLEROSIS
     Dates: start: 20010407, end: 20130506
  2. REBIF [Suspect]
     Dates: start: 20130506
  3. REBIF [Suspect]

REACTIONS (4)
  - Myocardial infarction [Recovering/Resolving]
  - Lung disorder [Not Recovered/Not Resolved]
  - Bronchial disorder [Not Recovered/Not Resolved]
  - Cross infection [Recovered/Resolved]
